FAERS Safety Report 14949464 (Version 1)
Quarter: 2018Q2

REPORT INFORMATION
  Report Type: Spontaneous
  Country: US (occurrence: US)
  Receive Date: 20180529
  Receipt Date: 20180529
  Transmission Date: 20180711
  Serious: No
  Sender: FDA-Public Use
  Company Number: US-BIODELIVERY SCIENCES INTERNATIONAL-2017BDSI0011

PATIENT
  Sex: Male
  Weight: 83.54 kg

DRUGS (1)
  1. BUPRENORPHINE/NALOXONE [Suspect]
     Active Substance: BUPRENORPHINE\NALOXONE
     Indication: DRUG DEPENDENCE
     Dosage: 6.3/1.0 MG
     Route: 002
     Dates: start: 201611

REACTIONS (6)
  - Product taste abnormal [Unknown]
  - Retching [Unknown]
  - Impatience [Unknown]
  - Anxiety [Unknown]
  - Breath odour [Unknown]
  - Vomiting [Unknown]

NARRATIVE: CASE EVENT DATE: 201611
